FAERS Safety Report 5101197-0 (Version None)
Quarter: 2006Q3

REPORT INFORMATION
  Report Type: 
  Country: None (occurrence: None)
  Receive Date: 20060911
  Receipt Date: 20060907
  Transmission Date: 20061208
  Serious: Yes (Death, Hospitalization)
  Sender: FDA-Public Use
  Company Number: PHEH2006US11445

PATIENT
  Age: 74 Year
  Sex: Male

DRUGS (1)
  1. EXJADE [Suspect]
     Indication: MULTIPLE MYELOMA
     Dosage: 1500 MG, QD
     Route: 048
     Dates: start: 20060501, end: 20060509

REACTIONS (4)
  - CIRCULATORY COLLAPSE [None]
  - NAUSEA [None]
  - PNEUMONIA [None]
  - VOMITING [None]
